FAERS Safety Report 7896389-1 (Version None)
Quarter: 2011Q4

REPORT INFORMATION
  Report Type: 
  Country: None (occurrence: None)
  Receive Date: 20111106
  Receipt Date: 20110908
  Transmission Date: 20120403
  Serious: No
  Sender: FDA-Public Use
  Company Number: US-AMGEN-USASP2011046068

PATIENT
  Age: 71 Year
  Sex: Male

DRUGS (1)
  1. ENBREL [Suspect]
     Indication: RHEUMATOID ARTHRITIS
     Dosage: UNK
     Dates: start: 20110729

REACTIONS (5)
  - PAIN IN EXTREMITY [None]
  - POOR QUALITY SLEEP [None]
  - BACK PAIN [None]
  - FATIGUE [None]
  - MIDDLE INSOMNIA [None]
